FAERS Safety Report 4598336-7 (Version None)
Quarter: 2005Q1

REPORT INFORMATION
  Report Type: 
  Country: None (occurrence: None)
  Receive Date: 20050304
  Receipt Date: 20050126
  Transmission Date: 20050727
  Serious: Yes (Hospitalization)
  Sender: FDA-Public Use
  Company Number: PHHO2005JP01666

PATIENT
  Age: 84 Year
  Sex: Male

DRUGS (7)
  1. LOCHOL [Suspect]
     Indication: HYPERCHOLESTEROLAEMIA
     Dosage: 20 MG, QD
     Route: 048
     Dates: start: 20010919
  2. NORVASC [Concomitant]
     Dates: start: 20001229
  3. NITROGLYCERIN [Concomitant]
     Indication: MYOCARDIAL ISCHAEMIA
     Dates: start: 20001229
  4. BLADDERON [Concomitant]
     Indication: NEUROGENIC BLADDER
     Dates: start: 20001229
  5. PROCTOSEDYL [Concomitant]
     Indication: HAEMORRHOIDS
     Dates: start: 20001229
  6. ALOSENN [Concomitant]
     Dates: start: 20001229
  7. VASOLAN [Suspect]
     Dates: start: 20030927

REACTIONS (2)
  - ATRIAL FIBRILLATION [None]
  - CARDIAC FAILURE [None]
